FAERS Safety Report 10056208 (Version 2)
Quarter: 2014Q3

REPORT INFORMATION
  Report Type: Spontaneous
  Country: US (occurrence: US)
  Receive Date: 20140403
  Receipt Date: 20140818
  Transmission Date: 20150326
  Serious: Yes (Life-Threatening, Hospitalization)
  Sender: FDA-Public Use
  Company Number: US-BAYER-2014-050137

PATIENT
  Age: 29 Year
  Sex: Female
  Weight: 79.37 kg

DRUGS (1)
  1. MIRENA [Suspect]
     Active Substance: LEVONORGESTREL
     Indication: CONTRACEPTION
     Dosage: 20 MCG/24HR, CONT
     Route: 015
     Dates: start: 20080211, end: 20091109

REACTIONS (10)
  - Ovarian cyst [None]
  - Abdominal pain lower [None]
  - Injury [None]
  - Anhedonia [None]
  - Device issue [None]
  - Pain [None]
  - General physical health deterioration [None]
  - Embedded device [None]
  - Anxiety [None]
  - Emotional distress [None]

NARRATIVE: CASE EVENT DATE: 200911
